FAERS Safety Report 15377331 (Version 3)
Quarter: 2019Q3

REPORT INFORMATION
  Report Type: Spontaneous
  Country: US (occurrence: US)
  Receive Date: 20180913
  Receipt Date: 20190904
  Transmission Date: 20191004
  Serious: No
  Sender: FDA-Public Use
  Company Number: US-PFIZER INC-2018368495

PATIENT
  Age: 47 Year
  Sex: Female
  Weight: 98 kg

DRUGS (4)
  1. LYRICA [Suspect]
     Active Substance: PREGABALIN
     Indication: SPINAL STENOSIS
     Dosage: 300 MG, 2X/DAY
     Route: 048
     Dates: end: 201908
  2. LYRICA [Suspect]
     Active Substance: PREGABALIN
     Indication: PAIN
  3. CYMBALTA [Concomitant]
     Active Substance: DULOXETINE HYDROCHLORIDE
     Indication: ANXIETY
     Dosage: 60 MG, UNK
  4. LYRICA [Suspect]
     Active Substance: PREGABALIN
     Indication: FIBROMYALGIA
     Dosage: 450 MG, DAILY (ONE IN THE MORNING 2 AT NIGHT)
     Route: 048
     Dates: start: 2013, end: 20180818

REACTIONS (9)
  - Rhinorrhoea [Unknown]
  - Withdrawal syndrome [Not Recovered/Not Resolved]
  - Swelling [Not Recovered/Not Resolved]
  - Headache [Not Recovered/Not Resolved]
  - Palpitations [Recovering/Resolving]
  - Hyperhidrosis [Recovering/Resolving]
  - Irritability [Unknown]
  - Weight increased [Unknown]
  - Emotional disorder [Not Recovered/Not Resolved]

NARRATIVE: CASE EVENT DATE: 20180818
